FAERS Safety Report 23556063 (Version 1)
Quarter: 2024Q1

REPORT INFORMATION
  Report Type: Spontaneous
  Country: US (occurrence: US)
  Receive Date: 20240222
  Receipt Date: 20240222
  Transmission Date: 20240410
  Serious: Yes (Hospitalization, Other)
  Sender: FDA-Public Use
  Company Number: US-AVET LIFESCIENCES LTD-2024-AVET-000033

PATIENT
  Age: 70 Year
  Sex: Male

DRUGS (2)
  1. TRANEXAMIC ACID [Suspect]
     Active Substance: TRANEXAMIC ACID
     Indication: Spinal anaesthesia
     Dosage: 250 MILLIGRAM
     Route: 037
  2. TRANEXAMIC ACID [Suspect]
     Active Substance: TRANEXAMIC ACID
     Indication: Joint arthroplasty

REACTIONS (4)
  - Incorrect route of product administration [Unknown]
  - Generalised tonic-clonic seizure [Recovered/Resolved]
  - Labile blood pressure [Unknown]
  - Off label use [Unknown]
